FAERS Safety Report 10220672 (Version 1)
Quarter: 2014Q2

REPORT INFORMATION
  Report Type: Other
  Country: GB (occurrence: GB)
  Receive Date: 20140606
  Receipt Date: 20140606
  Transmission Date: 20141212
  Serious: Yes (Other)
  Sender: FDA-Public Use
  Company Number: GB-SUN PHARMACEUTICAL INDUSTRIES LTD-2014SUN00581

PATIENT
  Sex: 0

DRUGS (9)
  1. IBANDRONIC ACID SUN 3 MG SOLUTION FOR INJECTION IN PRE-FILLED SYRINGE [Suspect]
     Indication: PROPHYLAXIS
     Dosage: 3 MG, UNK
     Route: 042
     Dates: start: 20140205
  2. DESUNIN [Concomitant]
     Dosage: 1 DF, QD
  3. PREDNISOLONE [Concomitant]
     Dosage: 25 MG, UNK
     Route: 048
  4. THYROXINE [Concomitant]
     Dosage: 75 ?G, UNK
  5. THYROXINE [Concomitant]
  6. SIMVASTATIN [Concomitant]
     Dosage: 20 MG, UNK
  7. PANTOPRAZOLE [Concomitant]
     Dosage: 40 MG, QD
  8. DOSULEPIN [Concomitant]
  9. OXAZEPAM [Concomitant]
     Dosage: 15 MG, TID
     Route: 048

REACTIONS (5)
  - Mouth ulceration [Recovered/Resolved]
  - Feeling abnormal [Recovered/Resolved]
  - Spinal pain [Recovered/Resolved]
  - Skin discolouration [Not Recovered/Not Resolved]
  - Rash pruritic [Recovered/Resolved]
